FAERS Safety Report 25600619 (Version 1)
Quarter: 2025Q3

REPORT INFORMATION
  Report Type: Spontaneous
  Country: EU (occurrence: EU)
  Receive Date: 20250724
  Receipt Date: 20250724
  Transmission Date: 20251021
  Serious: Yes (Other)
  Sender: AUROBINDO
  Company Number: EU-EMA-DD-20211222-singh_p11-155013

PATIENT
  Age: 65 Year
  Sex: Male

DRUGS (5)
  1. IMATINIB [Suspect]
     Active Substance: IMATINIB
     Indication: Acute myeloid leukaemia
     Dosage: 100 MILLIGRAM, ONCE A DAY
     Route: 065
  2. CYTARABINE [Suspect]
     Active Substance: CYTARABINE
     Indication: Acute myeloid leukaemia
     Route: 065
  3. IDARUBICIN [Suspect]
     Active Substance: IDARUBICIN
     Indication: Acute myeloid leukaemia
     Route: 065
  4. NEXAVAR [Suspect]
     Active Substance: SORAFENIB
     Indication: Acute myeloid leukaemia
     Dosage: 400 MILLIGRAM, TWO TIMES A DAY
     Route: 048
  5. AMSACRINE [Concomitant]
     Active Substance: AMSACRINE
     Indication: Acute myeloid leukaemia
     Route: 065

REACTIONS (2)
  - Drug resistance [Unknown]
  - Off label use [Unknown]
